FAERS Safety Report 8895813 (Version 6)
Quarter: 2017Q4

REPORT INFORMATION
  Report Type: Spontaneous
  Country: US (occurrence: US)
  Receive Date: 20121107
  Receipt Date: 20171113
  Transmission Date: 20180321
  Serious: Yes (Hospitalization, Disabling, Other)
  Sender: FDA-Public Use
  Company Number: US-MERCK-1210USA012656

PATIENT
  Sex: Female
  Weight: 111.11 kg

DRUGS (4)
  1. ALENDRONATE SODIUM. [Suspect]
     Active Substance: ALENDRONATE SODIUM
     Indication: OSTEOPOROSIS
     Dosage: 70 MG, QW
     Route: 048
     Dates: start: 20081222, end: 201102
  2. FOSAMAX [Suspect]
     Active Substance: ALENDRONATE SODIUM
     Indication: OSTEOPOROSIS
     Dosage: 70 MG, QW
     Route: 048
     Dates: start: 20060106, end: 200802
  3. ALENDRONATE SODIUM. [Suspect]
     Active Substance: ALENDRONATE SODIUM
     Indication: OSTEOPOROSIS
     Dosage: 70 MG, QW
     Route: 048
     Dates: start: 20080909, end: 200812
  4. SYNTHROID [Concomitant]
     Active Substance: LEVOTHYROXINE SODIUM
     Indication: HYPOTHYROIDISM
     Dosage: UNK
     Route: 065
     Dates: start: 1973

REACTIONS (24)
  - Osteopenia [Unknown]
  - Shoulder arthroplasty [Unknown]
  - Hypertension [Not Recovered/Not Resolved]
  - Osteoarthritis [Unknown]
  - Dyslipidaemia [Unknown]
  - Pain in extremity [Not Recovered/Not Resolved]
  - Anxiety [Unknown]
  - Foot deformity [Unknown]
  - Back pain [Not Recovered/Not Resolved]
  - Femur fracture [Not Recovered/Not Resolved]
  - Depression [Unknown]
  - Pubis fracture [Unknown]
  - Blepharoplasty [Unknown]
  - Bunion operation [Unknown]
  - Rotator cuff repair [Unknown]
  - Blood cholesterol increased [Unknown]
  - Hypercalcaemia [Unknown]
  - Osteoarthritis [Unknown]
  - Bursitis [Unknown]
  - Spinal laminectomy [Unknown]
  - Shoulder arthroplasty [Unknown]
  - Knee arthroplasty [Unknown]
  - Sleep disorder [Unknown]
  - Chronic obstructive pulmonary disease [Unknown]

NARRATIVE: CASE EVENT DATE: 2006
